FAERS Safety Report 21979396 (Version 2)
Quarter: 2023Q1

REPORT INFORMATION
  Report Type: Spontaneous
  Country: IT (occurrence: IT)
  Receive Date: 20230210
  Receipt Date: 20230220
  Transmission Date: 20230417
  Serious: Yes (Death, Hospitalization, Other)
  Sender: FDA-Public Use
  Company Number: IT-002147023-NVSC2022IT282972

PATIENT
  Age: 50 Year
  Sex: Male

DRUGS (1)
  1. ADALIMUMAB [Suspect]
     Active Substance: ADALIMUMAB
     Indication: Psoriatic arthropathy
     Dosage: UNKNOWN (DOSAGE1: UNIT=NOT AVAILABLE)
     Route: 065

REACTIONS (6)
  - Meningitis cryptococcal [Fatal]
  - Cryptococcal meningoencephalitis [Fatal]
  - Hydrocephalus [Unknown]
  - Infected vasculitis [Unknown]
  - Pneumonia [Unknown]
  - Immunosuppression [Unknown]
